FAERS Safety Report 9238722 (Version 1)
Quarter: 2013Q2

REPORT INFORMATION
  Report Type: Spontaneous
  Country: US (occurrence: None)
  Receive Date: 20130417
  Receipt Date: 20130417
  Transmission Date: 20140414
  Serious: Yes (Other)
  Sender: FDA-Public Use
  Company Number: None

PATIENT
  Age: 22 Year
  Sex: Female
  Weight: 59.88 kg

DRUGS (1)
  1. SCOPOLAMINE FILM EXTENDED RELEASE [Suspect]
     Indication: MOTION SICKNESS
     Dosage: 1 PATCH EVERY 72  TRANSDERMAL?3/23,  3/26
     Route: 062

REACTIONS (2)
  - Vision blurred [None]
  - Vision blurred [None]
